FAERS Safety Report 11090114 (Version 2)
Quarter: 2015Q2

REPORT INFORMATION
  Report Type: Report from Study
  Country: CH (occurrence: CH)
  Receive Date: 20150505
  Receipt Date: 20150527
  Transmission Date: 20150821
  Serious: Yes (Other)
  Sender: FDA-Public Use
  Company Number: CH-ABBVIE-15P-151-1384719-00

PATIENT
  Age: 73 Year
  Sex: Female

DRUGS (1)
  1. DUODOPA [Suspect]
     Active Substance: CARBIDOPA\LEVODOPA
     Indication: PARKINSON^S DISEASE
     Dosage: 16H THERAPY MORNING DOSE: 5MLCONTINUOUS DOSE: 1.9ML/HEXTRA DOSE: 1ML
     Route: 050
     Dates: start: 20150428

REACTIONS (4)
  - Vascular injury [Unknown]
  - Procedural complication [Unknown]
  - Haemorrhage [Unknown]
  - Procedural complication [Unknown]

NARRATIVE: CASE EVENT DATE: 20150430
